FAERS Safety Report 5966868-2 (Version None)
Quarter: 2008Q4

REPORT INFORMATION
  Report Type: 
  Country: None (occurrence: None)
  Receive Date: 20081125
  Receipt Date: 20081114
  Transmission Date: 20090506
  Serious: Yes (Hospitalization)
  Sender: FDA-Public Use
  Company Number: IT-BAXTER-2008BH012458

PATIENT
  Age: 31 Year
  Sex: Female

DRUGS (16)
  1. SODIUM CHLORIDE 0.9% IN PLASTIC CONTAINER [Suspect]
     Indication: DRUG USE FOR UNKNOWN INDICATION
     Route: 042
     Dates: start: 20080801, end: 20080801
  2. SODIUM CHLORIDE 0.9% IN PLASTIC CONTAINER [Suspect]
     Route: 042
     Dates: start: 20080801, end: 20080801
  3. SODIUM CHLORIDE 0.9% IN PLASTIC CONTAINER [Suspect]
     Route: 042
     Dates: start: 20080801, end: 20080801
  4. SODIUM CHLORIDE 0.9% IN PLASTIC CONTAINER [Suspect]
     Route: 042
     Dates: start: 20080801, end: 20080801
  5. DEXTROSE 5% [Suspect]
     Indication: DRUG USE FOR UNKNOWN INDICATION
     Route: 042
     Dates: start: 20080801, end: 20080801
  6. METHERGINE [Suspect]
     Indication: CAESAREAN SECTION
     Route: 042
     Dates: start: 20080801, end: 20080801
  7. METHERGINE [Suspect]
     Route: 042
     Dates: start: 20080801, end: 20080801
  8. ATROPINE [Suspect]
     Indication: DRUG USE FOR UNKNOWN INDICATION
     Route: 042
     Dates: start: 20080801, end: 20080801
  9. ATROPINE [Suspect]
     Route: 042
     Dates: start: 20080801, end: 20080801
  10. SYNTOCINON [Suspect]
     Indication: DRUG USE FOR UNKNOWN INDICATION
     Route: 042
     Dates: start: 20080801, end: 20080801
  11. SYNTOCINON [Suspect]
     Route: 042
     Dates: start: 20080801, end: 20080801
  12. BUPIVACAINE [Suspect]
     Indication: DRUG USE FOR UNKNOWN INDICATION
     Route: 024
     Dates: start: 20080801, end: 20080801
  13. EMAGEL [Suspect]
     Indication: DRUG USE FOR UNKNOWN INDICATION
     Route: 042
     Dates: start: 20080801, end: 20080801
  14. EMAGEL [Suspect]
     Route: 042
     Dates: start: 20080801, end: 20080801
  15. BENTELAN [Suspect]
     Indication: ANAESTHESIA
     Route: 042
     Dates: start: 20080801, end: 20080801
  16. BENTELAN [Suspect]
     Route: 042
     Dates: start: 20080801, end: 20080801

REACTIONS (1)
  - DISSEMINATED INTRAVASCULAR COAGULATION [None]
